FAERS Safety Report 25872062 (Version 1)
Quarter: 2025Q4

REPORT INFORMATION
  Report Type: Spontaneous
  Country: BR (occurrence: BR)
  Receive Date: 20251002
  Receipt Date: 20251002
  Transmission Date: 20260118
  Serious: Yes (Other)
  Sender: Y-MABS THERAPEUTICS
  Company Number: BR-Y-MABS THERAPEUTICS, INC.-SPO2025-BR-002221

PATIENT

DRUGS (2)
  1. DANYELZA [Suspect]
     Active Substance: NAXITAMAB-GQGK
     Indication: Neuroblastoma
     Dosage: CYCLE 1, DOSE 1
     Route: 042
     Dates: start: 202411, end: 202411
  2. DANYELZA [Suspect]
     Active Substance: NAXITAMAB-GQGK
     Dosage: CYCLE 6, DOSE 1
     Route: 042
     Dates: start: 202507, end: 202507

REACTIONS (2)
  - Pneumonia [Unknown]
  - Pyrexia [Unknown]

NARRATIVE: CASE EVENT DATE: 20250801
